FAERS Safety Report 9354546 (Version 1)
Quarter: 2013Q2

REPORT INFORMATION
  Report Type: Spontaneous
  Country: GB (occurrence: GB)
  Receive Date: 20130618
  Receipt Date: 20130618
  Transmission Date: 20140414
  Serious: Yes (Other)
  Sender: FDA-Public Use
  Company Number: GB-ASTRAZENECA-2013SE42013

PATIENT
  Age: 75 Year
  Sex: Male
  Weight: 79 kg

DRUGS (7)
  1. TICAGRELOR [Suspect]
     Indication: ACUTE MYOCARDIAL INFARCTION
     Route: 048
     Dates: start: 20121019, end: 20130530
  2. ATORVASTATIN [Suspect]
     Indication: ACUTE MYOCARDIAL INFARCTION
     Route: 048
     Dates: start: 20121019
  3. ATORVASTATIN [Suspect]
     Indication: ACUTE MYOCARDIAL INFARCTION
     Route: 048
     Dates: end: 20130530
  4. ASPIRIN [Concomitant]
     Route: 065
  5. BISOPROLOL [Concomitant]
     Route: 065
  6. RAMIPRIL [Concomitant]
     Route: 065
  7. ZOTON [Concomitant]
     Route: 065

REACTIONS (1)
  - Abdominal pain upper [Recovered/Resolved]
